FAERS Safety Report 6750050-5 (Version None)
Quarter: 2010Q2

REPORT INFORMATION
  Report Type: 
  Country: None (occurrence: None)
  Receive Date: 20100601
  Receipt Date: 20100519
  Transmission Date: 20101027
  Serious: Yes (Other)
  Sender: FDA-Public Use
  Company Number: US-PFIZER INC-2010063255

PATIENT
  Sex: Female
  Weight: 99.773 kg

DRUGS (1)
  1. DILANTIN-125 [Suspect]
     Dosage: UNK
     Dates: end: 19580101

REACTIONS (1)
  - CONVULSION [None]
